FAERS Safety Report 7788704-4 (Version None)
Quarter: 2011Q3

REPORT INFORMATION
  Report Type: 
  Country: None (occurrence: None)
  Receive Date: 20110928
  Receipt Date: 20110920
  Transmission Date: 20111222
  Serious: Yes (Other)
  Sender: FDA-Public Use
  Company Number: AUR-APL-2011-05163

PATIENT
  Age: 77 Year
  Sex: Male
  Weight: 88.89 kg

DRUGS (6)
  1. MELOXICAM [Suspect]
     Indication: INTERVERTEBRAL DISC DISORDER
     Dosage: (1 D), ORAL
     Route: 048
     Dates: start: 20110715
  2. METOPROLOL TARTRATE [Concomitant]
  3. OMEPRAZOLE [Concomitant]
  4. LISINOPRIL [Concomitant]
  5. CELEBREX [Suspect]
     Indication: INTERVERTEBRAL DISC DISORDER
     Dosage: ORAL
     Route: 048
     Dates: start: 20110712, end: 20110714
  6. VYTORIN [Concomitant]

REACTIONS (4)
  - MUSCULOSKELETAL STIFFNESS [None]
  - JOINT STIFFNESS [None]
  - BALANCE DISORDER [None]
  - FEELING ABNORMAL [None]
